FAERS Safety Report 19738524 (Version 11)
Quarter: 2025Q2

REPORT INFORMATION
  Report Type: Report from Study
  Country: MX (occurrence: MX)
  Receive Date: 20210823
  Receipt Date: 20250513
  Transmission Date: 20250717
  Serious: Yes (Hospitalization, Other)
  Sender: TAKEDA
  Company Number: MX-TAKEDA-2021TUS052253

PATIENT
  Age: 11 Year
  Sex: Male
  Weight: 17 kg

DRUGS (7)
  1. IDURSULFASE [Suspect]
     Active Substance: IDURSULFASE
     Indication: Mucopolysaccharidosis II
     Dosage: UNK UNK, 1/WEEK
     Dates: start: 20210216
  2. IDURSULFASE [Suspect]
     Active Substance: IDURSULFASE
     Dosage: 2 DOSAGE FORM, 1/WEEK
     Dates: start: 20210714
  3. IDURSULFASE [Suspect]
     Active Substance: IDURSULFASE
  4. IDURSULFASE [Suspect]
     Active Substance: IDURSULFASE
     Dosage: UNK UNK, 1/WEEK
  5. ZINC GLUCONATE [Concomitant]
     Active Substance: ZINC GLUCONATE
     Dosage: 30 MILLIGRAM, QD
  6. ACETAMINOPHEN [Concomitant]
     Active Substance: ACETAMINOPHEN
     Dosage: 250 MILLIGRAM, Q8HR
  7. Senosidos AB [Concomitant]
     Dosage: UNK UNK, QD

REACTIONS (13)
  - Food intolerance [Unknown]
  - Pneumonia aspiration [Not Recovered/Not Resolved]
  - Stoma site reaction [Not Recovered/Not Resolved]
  - Asthenia [Recovered/Resolved]
  - Body temperature abnormal [Recovered/Resolved]
  - Abdominal pain upper [Recovered/Resolved]
  - Agitation [Recovered/Resolved]
  - Oxygen saturation abnormal [Recovered/Resolved]
  - Pneumonia [Not Recovered/Not Resolved]
  - Respiratory disorder [Recovered/Resolved]
  - Inappropriate schedule of product administration [Recovering/Resolving]
  - Product dose omission issue [Not Recovered/Not Resolved]
  - Treatment noncompliance [Not Recovered/Not Resolved]

NARRATIVE: CASE EVENT DATE: 20220505
